FAERS Safety Report 6299162-3 (Version None)
Quarter: 2009Q3

REPORT INFORMATION
  Report Type: 
  Country: None (occurrence: None)
  Receive Date: 20090806
  Receipt Date: 20090727
  Transmission Date: 20100115
  Serious: Yes (Other)
  Sender: FDA-Public Use
  Company Number: ES-JNJFOC-20040306043

PATIENT
  Age: 71 Year
  Sex: Male

DRUGS (5)
  1. REMICADE [Suspect]
     Indication: RHEUMATOID ARTHRITIS
     Route: 042
  2. METHOTREXATE [Concomitant]
  3. CORTICOSTEROID NOS [Concomitant]
  4. NONSTEROIDAL ANTI-INFLAMMATORY AGENT NOS [Concomitant]
  5. ACFOL [Concomitant]

REACTIONS (2)
  - INTESTINAL PERFORATION [None]
  - TUBERCULOSIS [None]
